FAERS Safety Report 8366615-3 (Version None)
Quarter: 2012Q2

REPORT INFORMATION
  Report Type: 
  Country: None (occurrence: None)
  Receive Date: 20120516
  Receipt Date: 20120516
  Transmission Date: 20120825
  Serious: No
  Sender: FDA-Public Use
  Company Number: None

PATIENT
  Age: 56 Year
  Sex: Male
  Weight: 135.1719 kg

DRUGS (10)
  1. CRESTOR [Concomitant]
  2. DOXAZOSIN MESYLATE [Concomitant]
  3. LEVEMIR [Suspect]
     Indication: TYPE 2 DIABETES MELLITUS
     Dosage: 25+0 50 UNITS 2 TIMES DAILY INJECT
     Dates: start: 20120424
  4. FLUTICASONE PROPIONATE [Concomitant]
  5. ZETIA [Concomitant]
  6. PATANOL [Concomitant]
  7. PROAIR HFA [Concomitant]
  8. DIOVAN [Concomitant]
  9. NOVOLOG [Concomitant]
  10. ASMANEX TWISTHALER [Concomitant]

REACTIONS (1)
  - BLOOD GLUCOSE INCREASED [None]
